FAERS Safety Report 4319035-2 (Version None)
Quarter: 2004Q1

REPORT INFORMATION
  Report Type: 
  Country: None (occurrence: None)
  Receive Date: 20040316
  Receipt Date: 20040303
  Transmission Date: 20041129
  Serious: Yes (Hospitalization)
  Sender: FDA-Public Use
  Company Number: US068840

PATIENT
  Age: 61 Year
  Sex: Female

DRUGS (5)
  1. ENBREL [Suspect]
     Indication: RHEUMATOID ARTHRITIS
     Dates: start: 20010201
  2. TOBUTAMIDE [Concomitant]
  3. ATENOLOL [Concomitant]
  4. ALENDRONATE SODIUM [Concomitant]
  5. RAMIPRIL [Concomitant]

REACTIONS (7)
  - ARTHRITIS [None]
  - BLINDNESS UNILATERAL [None]
  - EYE DISORDER [None]
  - HEADACHE [None]
  - OPTIC NERVE INJURY [None]
  - PHOTOPSIA [None]
  - VOMITING [None]
